FAERS Safety Report 4333057-7 (Version None)
Quarter: 2004Q2

REPORT INFORMATION
  Report Type: 
  Country: None (occurrence: None)
  Receive Date: 20040406
  Receipt Date: 20040326
  Transmission Date: 20050107
  Serious: Yes (Other)
  Sender: FDA-Public Use
  Company Number: DE-ROCHE-363199

PATIENT
  Sex: Male
  Weight: 1.4 kg

DRUGS (3)
  1. ROCEPHIN [Suspect]
     Indication: DRUG USE FOR UNKNOWN INDICATION
  2. ERYTHROMYCIN [Concomitant]
  3. ZINERYT [Concomitant]

REACTIONS (5)
  - AMNIORRHEXIS [None]
  - COMPLICATIONS OF MATERNAL EXPOSURE TO THERAPEUTIC DRUGS [None]
  - HYPERPLASIA [None]
  - PREMATURE BABY [None]
  - RESPIRATION ABNORMAL [None]
